FAERS Safety Report 14751239 (Version 2)
Quarter: 2018Q2

REPORT INFORMATION
  Report Type: Report from Study
  Country: US (occurrence: US)
  Receive Date: 20180412
  Receipt Date: 20180508
  Transmission Date: 20180711
  Serious: Yes (Death)
  Sender: FDA-Public Use
  Company Number: PHEH2018US014061

PATIENT
  Sex: Male

DRUGS (1)
  1. TASIGNA [Suspect]
     Active Substance: NILOTINIB
     Indication: CHRONIC MYELOID LEUKAEMIA
     Dosage: 300 MG, BID
     Route: 048
     Dates: start: 20170825, end: 201804

REACTIONS (4)
  - Second primary malignancy [Fatal]
  - Respiratory failure [Fatal]
  - Squamous cell carcinoma of lung [Fatal]
  - Chronic obstructive pulmonary disease [Fatal]
